FAERS Safety Report 20950340 (Version 1)
Quarter: 2022Q2

REPORT INFORMATION
  Report Type: Report from Study
  Country: FR (occurrence: FR)
  Receive Date: 20220613
  Receipt Date: 20220613
  Transmission Date: 20220721
  Serious: Yes (Hospitalization)
  Sender: FDA-Public Use
  Company Number: FR-TAKEDA-FR201937257

PATIENT
  Age: 71 Year
  Sex: Female

DRUGS (9)
  1. VELAGLUCERASE ALFA [Suspect]
     Active Substance: VELAGLUCERASE ALFA
     Indication: Gaucher^s disease
     Dosage: 60 INTERNATIONAL UNIT/KILOGRAM, 1X/2WKS
     Route: 065
     Dates: start: 20100923, end: 2015
  2. VELAGLUCERASE ALFA [Suspect]
     Active Substance: VELAGLUCERASE ALFA
     Dosage: 60 INTERNATIONAL UNIT/KILOGRAM, 1X/2WKS
     Route: 065
     Dates: start: 20171226
  3. PROPRANOLOL HYDROCHLORIDE [Concomitant]
     Active Substance: PROPRANOLOL HYDROCHLORIDE
     Indication: Palpitations
     Dosage: 40 MILLIGRAM, BID
     Route: 048
     Dates: start: 2019
  4. PROPRANOLOL HYDROCHLORIDE [Concomitant]
     Active Substance: PROPRANOLOL HYDROCHLORIDE
     Indication: Atrial fibrillation
  5. AMITRIPTYLINE HYDROCHLORIDE [Concomitant]
     Active Substance: AMITRIPTYLINE HYDROCHLORIDE
     Indication: Abdominal pain
     Dosage: UNK
     Route: 065
  6. CALCIUM CARBONATE [Concomitant]
     Active Substance: CALCIUM CARBONATE
     Indication: Osteoporosis
     Dosage: 1 DOSAGE FORM, QD
     Route: 048
  7. VERAPAMIL HYDROCHLORIDE [Concomitant]
     Active Substance: VERAPAMIL HYDROCHLORIDE
     Indication: Palpitations
     Dosage: 1 DOSAGE FORM
     Route: 048
     Dates: start: 20181102, end: 20181102
  8. FLECAINIDE [Concomitant]
     Active Substance: FLECAINIDE
     Indication: Atrial fibrillation
     Dosage: 100 MILLIGRAM, QD
     Route: 048
     Dates: start: 20181105, end: 20200303
  9. ERGOCALCIFEROL [Concomitant]
     Active Substance: ERGOCALCIFEROL
     Indication: Vitamin D deficiency
     Dosage: 50000 INTERNATIONAL UNIT
     Route: 048
     Dates: start: 20210309

REACTIONS (2)
  - Palpitations [Recovered/Resolved]
  - Chest pain [Recovered/Resolved]

NARRATIVE: CASE EVENT DATE: 20181001
